FAERS Safety Report 8150017-9 (Version None)
Quarter: 2012Q1

REPORT INFORMATION
  Report Type: 
  Country: None (occurrence: None)
  Receive Date: 20120218
  Receipt Date: 20120207
  Transmission Date: 20120608
  Serious: Yes (Other)
  Sender: FDA-Public Use
  Company Number: BR-BRISTOL-MYERS SQUIBB COMPANY-16391237

PATIENT
  Age: 62 Year
  Sex: Female
  Weight: 70 kg

DRUGS (3)
  1. CORTICOSTEROID [Concomitant]
  2. ASPIRIN [Concomitant]
     Dates: start: 20050101
  3. HYDREA [Suspect]
     Route: 048
     Dates: start: 20050101

REACTIONS (3)
  - PLATELET COUNT INCREASED [None]
  - RED BLOOD CELL COUNT DECREASED [None]
  - CARDIAC FAILURE [None]
